FAERS Safety Report 4881705-5 (Version None)
Quarter: 2005Q4

REPORT INFORMATION
  Report Type: 
  Country: None (occurrence: None)
  Receive Date: 20051201
  Receipt Date: 20050724
  Transmission Date: 20060501
  Serious: No
  Sender: FDA-Public Use
  Company Number: 2005PV000576

PATIENT
  Age: 58 Year
  Sex: Female
  Weight: 81.6475 kg

DRUGS (9)
  1. BYETTA [Suspect]
     Indication: DIABETES MELLITUS
     Dosage: 5 MCG; BID; SC
     Route: 058
     Dates: start: 20050717, end: 20050720
  2. BYETTA [Suspect]
     Indication: DIABETES MELLITUS
     Dosage: 5 MCG; BID; SC
     Route: 058
     Dates: start: 20050723
  3. AMITRIPTYLINE HCL [Concomitant]
  4. NORVASC [Concomitant]
  5. GABAPENTIN [Concomitant]
  6. DIOVAN [Concomitant]
  7. DEPAKOTE [Concomitant]
  8. VALPROIC ACID [Concomitant]
  9. INSULIN-NOVOLOG [Concomitant]

REACTIONS (4)
  - DYSKINESIA [None]
  - NAUSEA [None]
  - TREMOR [None]
  - VOMITING [None]
